FAERS Safety Report 21385126 (Version 1)
Quarter: 2022Q3

REPORT INFORMATION
  Report Type: Spontaneous
  Country: US (occurrence: US)
  Receive Date: 20220928
  Receipt Date: 20220928
  Transmission Date: 20221027
  Serious: Yes (Hospitalization)
  Sender: FDA-Public Use
  Company Number: US-INFO-20220063

PATIENT
  Sex: Female

DRUGS (2)
  1. ZOLEDRONIC ACID [Suspect]
     Active Substance: ZOLEDRONIC ACID
     Indication: Osteoporosis
     Dosage: A SINGLE DOSE OF ZOLEDRONIC ACID ()
     Route: 040
     Dates: start: 20220812, end: 20220812
  2. TYLENOL [Concomitant]
     Active Substance: ACETAMINOPHEN
     Indication: Influenza like illness
     Dosage: AS NEEDED ()
     Route: 048
     Dates: start: 20220813, end: 20220815

REACTIONS (5)
  - Dizziness [Recovered/Resolved]
  - Chills [Recovered/Resolved]
  - Pyrexia [Recovered/Resolved]
  - Femoral neck fracture [Recovering/Resolving]
  - Off label use [Unknown]

NARRATIVE: CASE EVENT DATE: 20220813
